FAERS Safety Report 5857308-2 (Version None)
Quarter: 2008Q3

REPORT INFORMATION
  Report Type: 
  Country: None (occurrence: None)
  Receive Date: 20080822
  Receipt Date: 20080808
  Transmission Date: 20090109
  Serious: Yes (Other)
  Sender: FDA-Public Use
  Company Number: 8035863

PATIENT

DRUGS (1)
  1. KEPPRA [Suspect]
     Dosage: 2/D IV
     Route: 042

REACTIONS (1)
  - DRUG PRESCRIBING ERROR [None]
